FAERS Safety Report 21405785 (Version 3)
Quarter: 2024Q2

REPORT INFORMATION
  Report Type: Spontaneous
  Country: MY (occurrence: MY)
  Receive Date: 20221004
  Receipt Date: 20240429
  Transmission Date: 20240716
  Serious: Yes (Death, Life-Threatening, Hospitalization, Other)
  Sender: FDA-Public Use
  Company Number: None

PATIENT
  Age: 33 Year
  Sex: Male

DRUGS (7)
  1. MYCOPHENOLATE MOFETIL [Suspect]
     Active Substance: MYCOPHENOLATE MOFETIL
     Indication: Graft versus host disease
     Dosage: 750 MILLIGRAM, BID (EVERY 12 HOUR, TABLET)
     Route: 065
  2. CYCLOPHOSPHAMIDE [Suspect]
     Active Substance: CYCLOPHOSPHAMIDE
     Indication: Bone marrow conditioning regimen
     Dosage: UNK
     Route: 042
  3. CYCLOPHOSPHAMIDE [Suspect]
     Active Substance: CYCLOPHOSPHAMIDE
     Indication: Graft versus host disease
  4. PREDNISOLONE [Suspect]
     Active Substance: PREDNISOLONE
     Indication: Graft versus host disease
     Dosage: 10 MILLIGRAM, QD (EVERY 1 DAY)
     Route: 065
  5. ACYCLOVIR [Concomitant]
     Active Substance: ACYCLOVIR
     Indication: Graft versus host disease
     Dosage: 800 MILLIGRAM, BID (EVERY 12 HOUR)
     Route: 065
  6. BACTRIM [Concomitant]
     Active Substance: SULFAMETHOXAZOLE\TRIMETHOPRIM
     Indication: Graft versus host disease
     Dosage: UNK, BID (EVERY 12 HOUR)
     Route: 065
  7. ITRACONAZOLE [Concomitant]
     Active Substance: ITRACONAZOLE
     Indication: Graft versus host disease
     Dosage: 100 MILLIGRAM, QD  (EVERY 1 DAY)
     Route: 065

REACTIONS (5)
  - Squamous cell carcinoma of the oral cavity [Fatal]
  - Graft versus host disease in gastrointestinal tract [Recovered/Resolved]
  - Graft versus host disease in liver [Recovered/Resolved]
  - Graft versus host disease in eye [Recovered/Resolved]
  - Graft versus host disease in skin [Unknown]
